FAERS Safety Report 12301329 (Version 1)
Quarter: 2016Q2

REPORT INFORMATION
  Report Type: Spontaneous
  Country: FR (occurrence: FR)
  Receive Date: 20160425
  Receipt Date: 20160425
  Transmission Date: 20160815
  Serious: Yes (Other)
  Sender: FDA-Public Use
  Company Number: FR-PFIZER INC-2016224978

PATIENT
  Age: 93 Year
  Sex: Female

DRUGS (9)
  1. LASILIX [Suspect]
     Active Substance: FUROSEMIDE
     Dosage: 40 MG, 1X/DAY
     Route: 048
     Dates: start: 20160326, end: 20160326
  2. LYSANXIA [Suspect]
     Active Substance: PRAZEPAM
     Dosage: 10 MG, 1X/DAY
     Route: 048
     Dates: start: 20160326, end: 20160326
  3. ISOPTINE LP [Suspect]
     Active Substance: VERAPAMIL HYDROCHLORIDE
     Dosage: 240 MG, 1X/DAY
     Route: 048
     Dates: start: 20160326, end: 20160326
  4. KALEORID LP [Suspect]
     Active Substance: POTASSIUM CHLORIDE
     Dosage: 600 MG, 1X/DAY
     Route: 048
     Dates: start: 20160326, end: 20160326
  5. TEGRETOL LP [Suspect]
     Active Substance: CARBAMAZEPINE
     Dosage: 200 MG, 1X/DAY
     Route: 048
     Dates: start: 20160326, end: 20160326
  6. THEOSTAT [Suspect]
     Active Substance: THEOPHYLLINE ANHYDROUS
     Dosage: 100 MG, 1X/DAY
     Route: 048
     Dates: start: 20160326, end: 20160326
  7. LEVOTHYROX [Concomitant]
     Active Substance: LEVOTHYROXINE
     Dosage: 100 MG, UNK
  8. EFFEXOR LP [Suspect]
     Active Substance: VENLAFAXINE HYDROCHLORIDE
     Dosage: 75 MG, 1X/DAY
     Route: 048
     Dates: start: 20160326, end: 20160326
  9. NOZINAN [Suspect]
     Active Substance: LEVOMEPROMAZINE
     Dosage: 25 MG, 1X/DAY
     Route: 048
     Dates: start: 20160326, end: 20160326

REACTIONS (4)
  - Wrong patient received medication [Recovered/Resolved]
  - Medication error [Recovered/Resolved]
  - Somnolence [Recovered/Resolved]
  - Blood creatinine increased [Recovered/Resolved]

NARRATIVE: CASE EVENT DATE: 20160326
